FAERS Safety Report 9099575 (Version 3)
Quarter: 2013Q3

REPORT INFORMATION
  Report Type: Spontaneous
  Country: GB (occurrence: GB)
  Receive Date: 20130214
  Receipt Date: 20130917
  Transmission Date: 20140515
  Serious: Yes (Other)
  Sender: FDA-Public Use
  Company Number: GB-ROCHE-1190479

PATIENT
  Age: 49 Year
  Sex: Male
  Weight: 57 kg

DRUGS (3)
  1. RIBAVIRIN [Suspect]
     Indication: HEPATITIS C
     Route: 065
     Dates: start: 20121012, end: 20130108
  2. PEGASYS [Suspect]
     Indication: HEPATITIS C
     Route: 058
     Dates: start: 20121012, end: 20130108
  3. INCIVO [Suspect]
     Indication: HEPATITIS C
     Route: 048
     Dates: start: 20121012, end: 20130108

REACTIONS (4)
  - Vitreous floaters [Recovered/Resolved]
  - Retinal exudates [Recovered/Resolved]
  - Retinal haemorrhage [Recovered/Resolved]
  - Vision blurred [Unknown]
